FAERS Safety Report 26157552 (Version 1)
Quarter: 2025Q4

REPORT INFORMATION
  Report Type: Spontaneous
  Country: US (occurrence: US)
  Receive Date: 20251215
  Receipt Date: 20251215
  Transmission Date: 20260118
  Serious: No
  Sender: FRESENIUS KABI
  Company Number: US-FreseniusKabi-FK202516649

PATIENT
  Age: 26 Week
  Sex: Male

DRUGS (2)
  1. SMOFLIPID [Suspect]
     Active Substance: FISH OIL\MEDIUM-CHAIN TRIGLYCERIDES\OLIVE OIL\SOYBEAN OIL
     Indication: Parenteral nutrition
     Dosage: .44ML/HR?FORM OF ADMIN: INJECTABLE EMULSION
     Route: 042
     Dates: start: 20251130, end: 20251203
  2. SMOFLIPID [Suspect]
     Active Substance: FISH OIL\MEDIUM-CHAIN TRIGLYCERIDES\OLIVE OIL\SOYBEAN OIL
     Dosage: AT A RATE OF 0.08ML/HR (FROM A DIFFERENT LOT)?FORM OF ADMIN: INJECTABLE EMULSION
     Route: 042
     Dates: start: 20251203

REACTIONS (1)
  - Blood triglycerides increased [Recovered/Resolved]

NARRATIVE: CASE EVENT DATE: 20251203
